FAERS Safety Report 20716374 (Version 1)
Quarter: 2022Q2

REPORT INFORMATION
  Report Type: Spontaneous
  Country: ES (occurrence: ES)
  Receive Date: 20220416
  Receipt Date: 20220416
  Transmission Date: 20220720
  Serious: Yes (Life-Threatening, Hospitalization, Other)
  Sender: FDA-Public Use
  Company Number: ES-AEMPS-1157085

PATIENT
  Age: 27 Year
  Sex: Female

DRUGS (2)
  1. ALPRAZOLAM [Suspect]
     Active Substance: ALPRAZOLAM
     Indication: Product used for unknown indication
     Dosage: 30 TABLETS
     Route: 048
     Dates: start: 20220331
  2. LORAZEPAM [Suspect]
     Active Substance: LORAZEPAM
     Indication: Off label use
     Dosage: 6 TABLETS
     Route: 048
     Dates: start: 20220331

REACTIONS (3)
  - Suicide attempt [Recovering/Resolving]
  - Poisoning deliberate [Recovering/Resolving]
  - Somnolence [Recovering/Resolving]

NARRATIVE: CASE EVENT DATE: 20220331
